FAERS Safety Report 21103249 (Version 4)
Quarter: 2022Q3

REPORT INFORMATION
  Report Type: Spontaneous
  Country: RU (occurrence: RU)
  Receive Date: 20220720
  Receipt Date: 20220905
  Transmission Date: 20221026
  Serious: Yes (Other)
  Sender: FDA-Public Use
  Company Number: None

PATIENT
  Age: 7 Year
  Sex: Female
  Weight: 25 kg

DRUGS (1)
  1. FIASP [Suspect]
     Active Substance: INSULIN ASPART
     Indication: Type 1 diabetes mellitus
     Dosage: 7 IU, 5 TIMES DAILY
     Route: 058
     Dates: start: 202203, end: 202204

REACTIONS (6)
  - Hyperaemia [Recovering/Resolving]
  - Blood glucose increased [Recovering/Resolving]
  - Injection site pain [Recovering/Resolving]
  - Drug ineffective [Recovering/Resolving]
  - Pain in extremity [Recovering/Resolving]
  - Liquid product physical issue [Recovering/Resolving]

NARRATIVE: CASE EVENT DATE: 20220301
